FAERS Safety Report 6610837-6 (Version None)
Quarter: 2010Q1

REPORT INFORMATION
  Report Type: 
  Country: None (occurrence: None)
  Receive Date: 20100219
  Receipt Date: 20100208
  Transmission Date: 20100710
  Serious: Yes (Hospitalization)
  Sender: FDA-Public Use
  Company Number: 1-21602792

PATIENT
  Age: 64 Year
  Sex: Male

DRUGS (2)
  1. FENTANYL-25 [Suspect]
     Indication: PAIN
     Dosage: 75 MCG/HR, TRANSDERMAL
     Route: 062
     Dates: start: 20050401
  2. PHENPROCOUMON [Suspect]
     Indication: VASCULAR GRAFT

REACTIONS (11)
  - ASTHENIA [None]
  - BLOOD ALBUMIN DECREASED [None]
  - CONSTIPATION [None]
  - FATIGUE [None]
  - HAEMORRHAGE [None]
  - HYPOTENSION [None]
  - LIBIDO DECREASED [None]
  - OVERDOSE [None]
  - SECONDARY ADRENOCORTICAL INSUFFICIENCY [None]
  - SEXUAL DYSFUNCTION [None]
  - TREATMENT NONCOMPLIANCE [None]
